FAERS Safety Report 14152038 (Version 6)
Quarter: 2018Q2

REPORT INFORMATION
  Report Type: Spontaneous
  Country: IT (occurrence: IT)
  Receive Date: 20171102
  Receipt Date: 20180604
  Transmission Date: 20180711
  Serious: Yes (Other)
  Sender: FDA-Public Use
  Company Number: IT-ACCORD-060481

PATIENT
  Age: 59 Year
  Sex: Male

DRUGS (7)
  1. RIBAVIRIN RATIOPHARM [Interacting]
     Active Substance: RIBAVIRIN
     Indication: CHRONIC HEPATITIS C
     Route: 048
     Dates: start: 201604, end: 2016
  2. VIEKIRA PAK [Interacting]
     Active Substance: DASABUVIR\OMBITASVIR\PARITAPREVIR\RITONAVIR
     Indication: CHRONIC HEPATITIS C
     Route: 048
     Dates: start: 201604, end: 2016
  3. TACROLIMUS. [Interacting]
     Active Substance: TACROLIMUS
     Indication: IMMUNOSUPPRESSANT DRUG THERAPY
     Dosage: REDUCED DOSE
  4. MYCOPHENOLIC ACID. [Suspect]
     Active Substance: MYCOPHENOLIC ACID
     Indication: IMMUNOSUPPRESSANT DRUG THERAPY
  5. RITONAVIR. [Interacting]
     Active Substance: RITONAVIR
     Indication: HEPATITIS C
  6. PREDNISONE. [Interacting]
     Active Substance: PREDNISONE
     Indication: IMMUNOSUPPRESSANT DRUG THERAPY
  7. ENVARSUS XR [Interacting]
     Active Substance: TACROLIMUS
     Indication: IMMUNOSUPPRESSION

REACTIONS (10)
  - Insomnia [Unknown]
  - Immunosuppressant drug level increased [Recovered/Resolved]
  - Hepatitis C RNA increased [Unknown]
  - Anxiety [Unknown]
  - Palpitations [Unknown]
  - Drug interaction [Unknown]
  - Fatigue [Recovered/Resolved]
  - Renal failure [Recovered/Resolved]
  - Portal hypertension [Unknown]
  - Hepatic cirrhosis [Unknown]

NARRATIVE: CASE EVENT DATE: 2016
